FAERS Safety Report 6468878-8 (Version None)
Quarter: 2009Q4

REPORT INFORMATION
  Report Type: 
  Country: None (occurrence: None)
  Receive Date: 20091203
  Receipt Date: 20090128
  Transmission Date: 20100525
  Serious: Yes (Other)
  Sender: FDA-Public Use
  Company Number: DE-ELI_LILLY_AND_COMPANY-DE_050616223

PATIENT
  Sex: Male
  Weight: 88 kg

DRUGS (1)
  1. ZYPREXA [Suspect]
     Indication: SCHIZOPHRENIA
     Dosage: 10 MG, DAILY (1/D)
     Route: 048
     Dates: start: 19970101

REACTIONS (15)
  - ABDOMINAL PAIN UPPER [None]
  - ANGINA PECTORIS [None]
  - BLOOD TRIGLYCERIDES INCREASED [None]
  - CARDIOVASCULAR DISORDER [None]
  - CEREBROVASCULAR ACCIDENT [None]
  - DIZZINESS [None]
  - HEADACHE [None]
  - HEPATIC PAIN [None]
  - POOR PERIPHERAL CIRCULATION [None]
  - SLEEP DISORDER [None]
  - SPEECH DISORDER [None]
  - TINNITUS [None]
  - TYPE 2 DIABETES MELLITUS [None]
  - VISUAL ACUITY REDUCED [None]
  - WEIGHT INCREASED [None]
